FAERS Safety Report 7288156-7 (Version None)
Quarter: 2011Q1

REPORT INFORMATION
  Report Type: 
  Country: None (occurrence: None)
  Receive Date: 20110211
  Receipt Date: 20110202
  Transmission Date: 20110831
  Serious: Yes (Other)
  Sender: FDA-Public Use
  Company Number: RU-JNJFOC-20110202115

PATIENT
  Age: 24 Year
  Sex: Female

DRUGS (5)
  1. NISE [Concomitant]
  2. METHOTREXATE [Concomitant]
  3. PREDNISOLONE [Concomitant]
  4. REMICADE [Suspect]
     Indication: PRODUCT USED FOR UNKNOWN INDICATION
     Route: 042
  5. SULFASALAZINE [Concomitant]

REACTIONS (5)
  - TACHYCARDIA [None]
  - ANGIOEDEMA [None]
  - DYSPNOEA [None]
  - PRURITUS [None]
  - COUGH [None]
